FAERS Safety Report 15890479 (Version 1)
Quarter: 2019Q1

REPORT INFORMATION
  Report Type: Spontaneous
  Country: US (occurrence: US)
  Receive Date: 20190108
  Receipt Date: 20190108
  Transmission Date: 20190417
  Serious: No
  Sender: FDA-Public Use
  Company Number: None

PATIENT
  Age: 41 Year
  Sex: Male

DRUGS (1)
  1. GENTAMICIN INJ 40MG/ML [Suspect]
     Active Substance: GENTAMICIN
     Indication: URINARY TRACT INFECTION
     Route: 043
     Dates: start: 201901

REACTIONS (2)
  - Incorrect route of product administration [None]
  - Off label use [None]

NARRATIVE: CASE EVENT DATE: 20190108
